FAERS Safety Report 16557354 (Version 3)
Quarter: 2019Q4

REPORT INFORMATION
  Report Type: Report from Study
  Country: DE (occurrence: DE)
  Receive Date: 20190711
  Receipt Date: 20191227
  Transmission Date: 20200122
  Serious: Yes (Death, Hospitalization)
  Sender: FDA-Public Use
  Company Number: DE-ROCHE-2350566

PATIENT
  Age: 38 Year
  Sex: Female
  Weight: 100 kg

DRUGS (4)
  1. TRASTUZUMAB. [Suspect]
     Active Substance: TRASTUZUMAB
     Indication: BREAST CANCER
     Dosage: MOST RECENT DOSE OF TRASTUZUMAB 642 MG PRIOR TO SAE: 13/JUN/2019
     Route: 042
     Dates: start: 20181203, end: 20190613
  2. DOCETAXEL. [Suspect]
     Active Substance: DOCETAXEL
     Dosage: MOST RECENT DOSE OF DOCETAXEL PRIOR TO SAE
     Route: 042
     Dates: start: 20190613
  3. RED BLOOD CELLS, CONCENTRATED [Concomitant]
     Active Substance: HUMAN RED BLOOD CELL
     Route: 042
     Dates: start: 20190524, end: 20190524
  4. DOCETAXEL. [Suspect]
     Active Substance: DOCETAXEL
     Indication: BREAST CANCER
     Route: 042
     Dates: start: 20181203, end: 20190502

REACTIONS (1)
  - Asthma [Fatal]

NARRATIVE: CASE EVENT DATE: 20190629
